FAERS Safety Report 5595875-7 (Version None)
Quarter: 2008Q1

REPORT INFORMATION
  Report Type: 
  Country: None (occurrence: None)
  Receive Date: 20080118
  Receipt Date: 20070406
  Transmission Date: 20080703
  Serious: No
  Sender: FDA-Public Use
  Company Number: US-BRISTOL-MYERS SQUIBB COMPANY-13741673

PATIENT
  Sex: Male
  Weight: 73 kg

DRUGS (1)
  1. CEFZIL [Suspect]
     Dates: start: 20070101

REACTIONS (1)
  - ABDOMINAL PAIN UPPER [None]
